FAERS Safety Report 16711850 (Version 2)
Quarter: 2019Q3

REPORT INFORMATION
  Report Type: Report from Study
  Country: TW (occurrence: TW)
  Receive Date: 20190816
  Receipt Date: 20190926
  Transmission Date: 20191004
  Serious: Yes (Other)
  Sender: FDA-Public Use
  Company Number: PHHY2019TW190117

PATIENT
  Age: 66 Year
  Sex: Male

DRUGS (132)
  1. NPH INSULIN [Concomitant]
     Active Substance: INSULIN BEEF
     Dosage: 6 U, UNK
     Route: 058
     Dates: start: 20180109, end: 20180109
  2. PANTOPRAZOLE [Concomitant]
     Active Substance: PANTOPRAZOLE
     Dosage: 200 MG, UNK
     Route: 042
     Dates: start: 20180203, end: 20180206
  3. VENACALO-B6 [Concomitant]
     Active Substance: CALCIUM BROMIDE\DIPHENHYDRAMINE HYDROCHLORIDE\PYRIDOXINE HYDROCHLORIDE
     Dosage: 1 DF, UNK
     Route: 042
     Dates: start: 20180215, end: 20180215
  4. TASIGNA [Suspect]
     Active Substance: NILOTINIB
     Dosage: 200 MG, UNK
     Route: 048
     Dates: start: 20170524, end: 20180206
  5. GLUCOSE [Concomitant]
     Active Substance: DEXTROSE
     Dosage: 80 ML, UNK
     Route: 042
     Dates: start: 20180302, end: 20180303
  6. ACETYLCYSTEINE. [Concomitant]
     Active Substance: ACETYLCYSTEINE
     Dosage: 600 MG, UNK
     Route: 048
     Dates: start: 20180213, end: 20180217
  7. BENZBROMARONE [Concomitant]
     Active Substance: BENZBROMARONE
     Indication: GOUT
     Dosage: 100 MG, UNK
     Route: 048
     Dates: start: 20180130, end: 20180204
  8. COLCHICINE. [Concomitant]
     Active Substance: COLCHICINE
     Dosage: 0.5 MG, UNK
     Route: 048
     Dates: start: 20171201, end: 20171202
  9. COLCHICINE. [Concomitant]
     Active Substance: COLCHICINE
     Dosage: 0.5 MG, UNK
     Route: 048
     Dates: start: 20171219, end: 20180103
  10. SMECTITE [Concomitant]
     Active Substance: MONTMORILLONITE
     Indication: RESPIRATORY DISORDER
     Dosage: 3 G, UNK
     Route: 048
     Dates: start: 20180209, end: 20180210
  11. MAGNESIUM OXIDE. [Concomitant]
     Active Substance: MAGNESIUM OXIDE
     Dosage: 250 MG, UNK
     Route: 048
     Dates: start: 20180110, end: 20180114
  12. NOVOMIX [Concomitant]
     Active Substance: INSULIN ASPART
     Dosage: 18 U, UNK
     Route: 058
     Dates: start: 20180106, end: 20180109
  13. NPH INSULIN [Concomitant]
     Active Substance: INSULIN BEEF
     Dosage: 6 U, UNK
     Route: 058
     Dates: start: 20180117, end: 20180117
  14. PHYTOMENADIONE [Concomitant]
     Active Substance: PHYTONADIONE
     Indication: WOUND
     Dosage: 10 MG, UNK
     Route: 042
     Dates: start: 20171224, end: 20171224
  15. VENACALO-B6 [Concomitant]
     Active Substance: CALCIUM BROMIDE\DIPHENHYDRAMINE HYDROCHLORIDE\PYRIDOXINE HYDROCHLORIDE
     Indication: HYPERSENSITIVITY
     Dosage: 1 DF, UNK
     Route: 042
     Dates: start: 20171214, end: 20171215
  16. VENACALO-B6 [Concomitant]
     Active Substance: CALCIUM BROMIDE\DIPHENHYDRAMINE HYDROCHLORIDE\PYRIDOXINE HYDROCHLORIDE
     Dosage: 1 DF, UNK
     Route: 042
     Dates: start: 20180113, end: 20180113
  17. GLUCOSE [Concomitant]
     Active Substance: DEXTROSE
     Dosage: 40 ML, UNK
     Route: 042
     Dates: start: 20171121, end: 20171121
  18. DIMETHICONE. [Concomitant]
     Active Substance: DIMETHICONE
     Indication: ABDOMINAL DISCOMFORT
     Dosage: 40 MG, UNK
     Route: 048
     Dates: start: 20180103, end: 20180103
  19. DULCOLAX NOS [Concomitant]
     Active Substance: BISACODYL OR DOCUSATE SODIUM
     Indication: ABDOMINAL DISCOMFORT
     Dosage: 2 DF, UNK
     Route: 048
     Dates: start: 20171208, end: 20171208
  20. GLUCOPHAGE [Concomitant]
     Active Substance: METFORMIN HYDROCHLORIDE
     Dosage: 500 MG, UNK
     Route: 048
     Dates: start: 20180128, end: 20180204
  21. INSULIN ASPART [Concomitant]
     Active Substance: INSULIN ASPART
     Indication: DIABETES MELLITUS
     Dosage: 6 U, UNK
     Route: 042
     Dates: start: 20171220, end: 20171221
  22. INSULIN ASPART [Concomitant]
     Active Substance: INSULIN ASPART
     Dosage: 8 U, UNK
     Route: 042
     Dates: start: 20171221, end: 20171224
  23. MAGNESIUM OXIDE. [Concomitant]
     Active Substance: MAGNESIUM OXIDE
     Dosage: 250 MG, UNK
     Route: 048
     Dates: start: 20180117, end: 20180126
  24. MOSAPRIDE [Concomitant]
     Active Substance: MOSAPRIDE
     Indication: ABDOMINAL DISCOMFORT
     Dosage: 5 MG, UNK
     Route: 048
     Dates: start: 20180107, end: 20180127
  25. MYCOMB [Concomitant]
     Indication: INFECTION
     Dosage: UNK
     Route: 061
     Dates: start: 20180223
  26. NOVOMIX [Concomitant]
     Active Substance: INSULIN ASPART
     Dosage: 20 U, UNK
     Route: 058
     Dates: start: 20180112, end: 20180114
  27. NOVOMIX [Concomitant]
     Active Substance: INSULIN ASPART
     Dosage: 14 U, UNK
     Route: 058
     Dates: start: 20180115, end: 20180118
  28. NPH INSULIN [Concomitant]
     Active Substance: INSULIN BEEF
     Dosage: 6 U, UNK
     Route: 058
     Dates: start: 20180107, end: 20180107
  29. NPH INSULIN [Concomitant]
     Active Substance: INSULIN BEEF
     Dosage: 4 U, UNK
     Route: 058
     Dates: start: 20180112, end: 20180112
  30. SILYMARIN [Concomitant]
     Active Substance: DIETARY SUPPLEMENT\HERBALS\MILK THISTLE
     Indication: HEPATIC STEATOSIS
     Dosage: 150 MG, UNK
     Route: 048
     Dates: start: 20180124, end: 20180203
  31. SILYMARIN [Concomitant]
     Active Substance: DIETARY SUPPLEMENT\HERBALS\MILK THISTLE
     Dosage: 150 MG, UNK
     Route: 048
     Dates: start: 20180203, end: 20180204
  32. SILYMARIN [Concomitant]
     Active Substance: DIETARY SUPPLEMENT\HERBALS\MILK THISTLE
     Dosage: 150 MG, UNK
     Route: 048
     Dates: start: 20180216
  33. SODIUM BICARBONATE. [Concomitant]
     Active Substance: SODIUM BICARBONATE
     Indication: DEPRESSED LEVEL OF CONSCIOUSNESS
     Dosage: 40 ML, UNK
     Route: 042
     Dates: start: 20171123, end: 20171123
  34. TASIGNA [Suspect]
     Active Substance: NILOTINIB
     Indication: CHRONIC MYELOID LEUKAEMIA
     Dosage: 600 MG, UNK
     Route: 048
     Dates: start: 20160330, end: 20160601
  35. TASIGNA [Suspect]
     Active Substance: NILOTINIB
     Dosage: 150 MG, UNK
     Route: 048
     Dates: start: 20161109, end: 20170131
  36. GLUCOSE [Concomitant]
     Active Substance: DEXTROSE
     Indication: DIABETES MELLITUS
     Dosage: 100 ML, UNK
     Route: 042
     Dates: start: 20171120, end: 20171120
  37. ACETYLCYSTEINE. [Concomitant]
     Active Substance: ACETYLCYSTEINE
     Dosage: 200 MG, UNK
     Route: 048
     Dates: start: 20180205, end: 20180213
  38. AMLODIPINE [Concomitant]
     Active Substance: AMLODIPINE BESYLATE
     Indication: HYPERTENSION
     Dosage: 200 MG, UNK
     Route: 048
     Dates: start: 20171117, end: 20171117
  39. BISOPROLOL [Concomitant]
     Active Substance: BISOPROLOL
     Indication: HYPERTENSION
     Dosage: 1.25 MG, UNK
     Route: 048
     Dates: start: 20171124, end: 20171124
  40. GLUCOPHAGE [Concomitant]
     Active Substance: METFORMIN HYDROCHLORIDE
     Dosage: 500 MG, UNK
     Route: 048
     Dates: start: 20180205, end: 20180215
  41. INSULIN ASPART [Concomitant]
     Active Substance: INSULIN ASPART
     Dosage: 8 U, UNK
     Route: 042
     Dates: start: 20171224, end: 20171228
  42. NOVOMIX [Concomitant]
     Active Substance: INSULIN ASPART
     Dosage: 18 U, UNK
     Route: 058
     Dates: start: 20180111, end: 20180112
  43. NOVOMIX [Concomitant]
     Active Substance: INSULIN ASPART
     Dosage: 16 U, UNK
     Route: 058
     Dates: start: 20180114, end: 20180115
  44. INSULIN REGULAR [Concomitant]
     Active Substance: INSULIN NOS
     Indication: DIABETES MELLITUS
     Dosage: 4 U, UNK
     Route: 058
     Dates: start: 20171126
  45. INSULIN REGULAR [Concomitant]
     Active Substance: INSULIN NOS
     Dosage: 6 U, UNK
     Route: 042
     Dates: start: 20180103, end: 20180105
  46. INSULIN REGULAR [Concomitant]
     Active Substance: INSULIN NOS
     Dosage: 4 U, UNK
     Route: 042
     Dates: start: 20180215, end: 20180216
  47. SENNOSIDE [Concomitant]
     Active Substance: SENNOSIDES
     Dosage: 2 DF, UNK
     Route: 048
     Dates: start: 20180111, end: 20180112
  48. SENNOSIDE [Concomitant]
     Active Substance: SENNOSIDES
     Dosage: 1 DF, UNK
     Route: 048
     Dates: start: 20180112, end: 20180118
  49. SENNOSIDE [Concomitant]
     Active Substance: SENNOSIDES
     Dosage: 2 DF, UNK
     Route: 048
     Dates: start: 20180118, end: 20180204
  50. SILYMARIN [Concomitant]
     Active Substance: DIETARY SUPPLEMENT\HERBALS\MILK THISTLE
     Dosage: 150 MG, UNK
     Route: 048
     Dates: start: 20180205, end: 20180209
  51. ULCERIN [Concomitant]
     Indication: ABDOMINAL DISCOMFORT
     Dosage: 1 DF, UNK
     Route: 048
     Dates: start: 20171113, end: 20171122
  52. VENACALO-B6 [Concomitant]
     Active Substance: CALCIUM BROMIDE\DIPHENHYDRAMINE HYDROCHLORIDE\PYRIDOXINE HYDROCHLORIDE
     Dosage: 1 DF, UNK
     Route: 042
     Dates: start: 20180107, end: 20180107
  53. VENACALO-B6 [Concomitant]
     Active Substance: CALCIUM BROMIDE\DIPHENHYDRAMINE HYDROCHLORIDE\PYRIDOXINE HYDROCHLORIDE
     Dosage: 1 DF, UNK
     Route: 042
     Dates: start: 20180124, end: 20180124
  54. TASIGNA [Suspect]
     Active Substance: NILOTINIB
     Dosage: 150 MG, UNK
     Route: 048
     Dates: start: 20170201, end: 20170523
  55. ACETYLCYSTEINE. [Concomitant]
     Active Substance: ACETYLCYSTEINE
     Dosage: 200 MG, UNK
     Route: 048
     Dates: start: 20180204, end: 20180205
  56. ACTRAPID [Concomitant]
     Active Substance: INSULIN HUMAN
     Dosage: 2 U, UNK
     Route: 042
     Dates: start: 20180103, end: 20180103
  57. BENZBROMARONE [Concomitant]
     Active Substance: BENZBROMARONE
     Dosage: 100 MG, UNK
     Route: 048
     Dates: start: 20180204, end: 20180205
  58. BENZBROMARONE [Concomitant]
     Active Substance: BENZBROMARONE
     Dosage: 100 MG, UNK
     Route: 048
     Dates: start: 20180205, end: 20180207
  59. BISOPROLOL [Concomitant]
     Active Substance: BISOPROLOL
     Dosage: 1.25 MG, UNK
     Route: 048
     Dates: start: 20171206, end: 20171206
  60. DIMETHICONE. [Concomitant]
     Active Substance: DIMETHICONE
     Dosage: 40 MG, UNK
     Route: 048
     Dates: start: 20180107, end: 20180121
  61. SMECTITE [Concomitant]
     Active Substance: MONTMORILLONITE
     Dosage: 3 G, UNK
     Route: 048
     Dates: start: 20180210, end: 20180213
  62. HUMAN MONOSULIN [Concomitant]
     Active Substance: INSULIN HUMAN
     Indication: DIABETES MELLITUS
     Dosage: 6 U, UNK
     Route: 058
     Dates: start: 20180116, end: 20180116
  63. INSULIN REGULAR HM [Concomitant]
     Active Substance: INSULIN NOS
     Indication: DIABETES MELLITUS
     Dosage: 6 U, UNK
     Route: 058
     Dates: start: 20171213, end: 20171213
  64. LANSOPRAZOLE. [Concomitant]
     Active Substance: LANSOPRAZOLE
     Dosage: 30 MG, UNK
     Route: 048
     Dates: start: 20180212, end: 20180215
  65. MOSAPRIDE [Concomitant]
     Active Substance: MOSAPRIDE
     Dosage: 5 MG, UNK
     Route: 048
     Dates: start: 20180213, end: 20180213
  66. NPH INSULIN [Concomitant]
     Active Substance: INSULIN BEEF
     Dosage: 6 U, UNK
     Route: 058
     Dates: start: 20180110, end: 20180110
  67. VENACALO-B6 [Concomitant]
     Active Substance: CALCIUM BROMIDE\DIPHENHYDRAMINE HYDROCHLORIDE\PYRIDOXINE HYDROCHLORIDE
     Dosage: 1 DF, UNK
     Route: 042
     Dates: start: 20180105, end: 20180105
  68. VENACALO-B6 [Concomitant]
     Active Substance: CALCIUM BROMIDE\DIPHENHYDRAMINE HYDROCHLORIDE\PYRIDOXINE HYDROCHLORIDE
     Dosage: 1 DF, UNK
     Route: 042
     Dates: start: 20180203, end: 20180204
  69. VENACALO-B6 [Concomitant]
     Active Substance: CALCIUM BROMIDE\DIPHENHYDRAMINE HYDROCHLORIDE\PYRIDOXINE HYDROCHLORIDE
     Dosage: 1 DF, UNK
     Route: 042
     Dates: start: 20180114, end: 20180119
  70. TASIGNA [Suspect]
     Active Substance: NILOTINIB
     Dosage: 150 MG, UNK
     Route: 048
     Dates: start: 20160615, end: 20160628
  71. ACETAMINOPHEN. [Concomitant]
     Active Substance: ACETAMINOPHEN
     Indication: GOUT
     Dosage: 500 MG, UNK
     Route: 048
     Dates: start: 20171117, end: 20171124
  72. ACTRAPID [Concomitant]
     Active Substance: INSULIN HUMAN
     Indication: DIABETES MELLITUS
     Dosage: 14 U, UNK
     Route: 058
     Dates: start: 20171125, end: 20171129
  73. BISACODYL. [Concomitant]
     Active Substance: BISACODYL
     Indication: ABDOMINAL DISCOMFORT
     Dosage: 10 MG, UNK
     Route: 048
     Dates: start: 20180111, end: 20180114
  74. ESOMEPRAZOLE. [Concomitant]
     Active Substance: ESOMEPRAZOLE MAGNESIUM
     Indication: ABDOMINAL DISCOMFORT
     Dosage: 40 MG, UNK
     Route: 048
     Dates: start: 20171214, end: 20171215
  75. FUROSEMIDE. [Concomitant]
     Active Substance: FUROSEMIDE
     Indication: HYPERTENSION
     Dosage: 40 MG, UNK
     Route: 048
     Dates: start: 20171128, end: 20171128
  76. GLUCOPHAGE [Concomitant]
     Active Substance: METFORMIN HYDROCHLORIDE
     Indication: GOUT
     Dosage: 500 MG, UNK
     Route: 048
     Dates: start: 20180110, end: 20180126
  77. GLUCOPHAGE [Concomitant]
     Active Substance: METFORMIN HYDROCHLORIDE
     Dosage: 500 MG, UNK
     Route: 048
     Dates: start: 20180126, end: 20180128
  78. ISOPHANE INSULIN [Concomitant]
     Active Substance: INSULIN NOS
     Indication: DIABETES MELLITUS
     Dosage: 16 U, UNK
     Route: 058
     Dates: start: 20180307, end: 20180307
  79. INSULIN ASPART [Concomitant]
     Active Substance: INSULIN ASPART
     Dosage: 4 U, UNK
     Route: 058
     Dates: start: 20180207, end: 20180213
  80. NOVOMIX [Concomitant]
     Active Substance: INSULIN ASPART
     Dosage: 14 U, UNK
     Route: 058
     Dates: start: 20180106, end: 20180106
  81. NOVOMIX [Concomitant]
     Active Substance: INSULIN ASPART
     Dosage: 22 U, UNK
     Route: 058
     Dates: start: 20180109, end: 20180111
  82. NOVOMIX [Concomitant]
     Active Substance: INSULIN ASPART
     Dosage: 14 U, UNK
     Route: 058
     Dates: start: 20180119, end: 20180123
  83. PANTOPRAZOLE [Concomitant]
     Active Substance: PANTOPRAZOLE
     Dosage: 80 MG, UNK
     Route: 042
     Dates: start: 20180203, end: 20180203
  84. SILYMARIN [Concomitant]
     Active Substance: DIETARY SUPPLEMENT\HERBALS\MILK THISTLE
     Dosage: 150 MG, UNK
     Route: 048
     Dates: start: 20180204, end: 20180205
  85. ACETYLCYSTEINE. [Concomitant]
     Active Substance: ACETYLCYSTEINE
     Dosage: 200 MG, UNK
     Route: 048
     Dates: start: 20180121, end: 20180204
  86. COZAAR [Concomitant]
     Active Substance: LOSARTAN POTASSIUM
     Indication: HYPERTENSION
     Dosage: 25 MG, UNK
     Route: 048
     Dates: start: 20171208, end: 20171218
  87. NOVOMIX [Concomitant]
     Active Substance: INSULIN ASPART
     Dosage: 10 U, UNK
     Route: 058
     Dates: start: 20180124, end: 20180126
  88. NOVOMIX [Concomitant]
     Active Substance: INSULIN ASPART
     Dosage: 8 U, UNK
     Route: 058
     Dates: start: 20180126, end: 20180128
  89. NPH INSULIN [Concomitant]
     Active Substance: INSULIN BEEF
     Indication: DIABETES MELLITUS
     Dosage: 4 U, UNK
     Route: 058
     Dates: start: 20180103, end: 20180103
  90. NPH INSULIN [Concomitant]
     Active Substance: INSULIN BEEF
     Dosage: 12 U, UNK
     Route: 058
     Dates: start: 20180105, end: 20180105
  91. NPH INSULIN [Concomitant]
     Active Substance: INSULIN BEEF
     Dosage: 26 U, UNK
     Route: 058
     Dates: start: 20180106, end: 20180106
  92. NPH INSULIN [Concomitant]
     Active Substance: INSULIN BEEF
     Dosage: 14 U, UNK
     Route: 058
     Dates: start: 20180119, end: 20180119
  93. PANTOPRAZOLE [Concomitant]
     Active Substance: PANTOPRAZOLE
     Dosage: 80 MG, UNK
     Route: 042
     Dates: start: 20180215, end: 20180215
  94. INSULIN REGULAR [Concomitant]
     Active Substance: INSULIN NOS
     Dosage: 10 U, UNK
     Route: 058
     Dates: start: 20171129, end: 20171203
  95. INSULIN REGULAR [Concomitant]
     Active Substance: INSULIN NOS
     Dosage: 6 U, UNK
     Route: 058
     Dates: start: 20181109
  96. SODIUM BICARBONATE. [Concomitant]
     Active Substance: SODIUM BICARBONATE
     Indication: SURGERY
     Dosage: 40 ML, UNK
     Route: 042
     Dates: start: 20171218, end: 20171218
  97. TASIGNA [Suspect]
     Active Substance: NILOTINIB
     Dosage: 300 MG, UNK
     Route: 048
     Dates: start: 20160914, end: 20161011
  98. TASIGNA [Suspect]
     Active Substance: NILOTINIB
     Dosage: 150 MG, UNK
     Route: 048
     Dates: start: 20161012, end: 20161108
  99. GLUCOSE [Concomitant]
     Active Substance: DEXTROSE
     Dosage: 20 ML, UNK
     Route: 042
     Dates: start: 20180126, end: 20180126
  100. GLUCOSE [Concomitant]
     Active Substance: DEXTROSE
     Dosage: 20 ML, UNK
     Route: 042
     Dates: start: 20180130, end: 20180130
  101. GLUCOSE [Concomitant]
     Active Substance: DEXTROSE
     Dosage: 40 ML, UNK
     Route: 042
     Dates: start: 20180309
  102. ACETYLCYSTEINE. [Concomitant]
     Active Substance: ACETYLCYSTEINE
     Indication: RESPIRATORY DISORDER
     Dosage: 600 MG, UNK
     Route: 048
     Dates: start: 20171209, end: 20180103
  103. BISACODYL. [Concomitant]
     Active Substance: BISACODYL
     Dosage: 5 MG, UNK
     Route: 048
     Dates: start: 20180204, end: 20180204
  104. DEXAMETHASONE. [Concomitant]
     Active Substance: DEXAMETHASONE
     Indication: INFECTION
     Dosage: UNK
     Route: 061
     Dates: start: 20180203, end: 20180204
  105. DULCOLAX NOS [Concomitant]
     Active Substance: BISACODYL OR DOCUSATE SODIUM
     Dosage: 2 DF, UNK
     Route: 048
     Dates: start: 20171219, end: 20171219
  106. FLEET ENEMA [Concomitant]
     Active Substance: SODIUM PHOSPHATE, DIBASIC\SODIUM PHOSPHATE, MONOBASIC
     Indication: ABDOMINAL DISCOMFORT
     Dosage: 118 ML, UNK
     Route: 048
     Dates: start: 20171212, end: 20171212
  107. GLUCOPHAGE [Concomitant]
     Active Substance: METFORMIN HYDROCHLORIDE
     Dosage: 500 MG, UNK
     Route: 048
     Dates: start: 20180204, end: 20180205
  108. GLUCOSAMINE HYDROCHLORIDE [Concomitant]
     Active Substance: GLUCOSAMINE HYDROCHLORIDE
     Indication: DIABETES MELLITUS
     Dosage: 500 MG, UNK
     Route: 048
     Dates: start: 20171222, end: 20180103
  109. INSULIN ASPART [Concomitant]
     Active Substance: INSULIN ASPART
     Dosage: 4 U, UNK
     Route: 058
     Dates: start: 20180118, end: 20180119
  110. INSULIN ASPART [Concomitant]
     Active Substance: INSULIN ASPART
     Dosage: 6 U, UNK
     Route: 042
     Dates: start: 20180216, end: 20180220
  111. KENTAMIN [Concomitant]
     Indication: GOUT
     Dosage: 1 DF, UNK
     Route: 048
     Dates: start: 20171119, end: 20171120
  112. LANSOPRAZOLE. [Concomitant]
     Active Substance: LANSOPRAZOLE
     Indication: ABDOMINAL DISCOMFORT
     Dosage: 30 MG, UNK
     Route: 048
     Dates: start: 20180206, end: 20180207
  113. MAGNESIUM OXIDE. [Concomitant]
     Active Substance: MAGNESIUM OXIDE
     Indication: ABDOMINAL DISCOMFORT
     Dosage: 250 MG, UNK
     Route: 048
     Dates: start: 20171115, end: 20171116
  114. MAGNESIUM OXIDE. [Concomitant]
     Active Substance: MAGNESIUM OXIDE
     Dosage: 250 MG, UNK
     Route: 048
     Dates: start: 20180201, end: 20180202
  115. NOLIDIN [Concomitant]
     Indication: ABDOMINAL DISCOMFORT
     Dosage: 1 DF, UNK
     Route: 048
     Dates: start: 20171230, end: 20180103
  116. NOVOMIX [Concomitant]
     Active Substance: INSULIN ASPART
     Indication: DIABETES MELLITUS
     Dosage: 10 U, UNK
     Route: 058
     Dates: start: 20180105, end: 20180105
  117. NPH INSULIN [Concomitant]
     Active Substance: INSULIN BEEF
     Dosage: 14 U, UNK
     Route: 058
     Dates: start: 20180123, end: 20180123
  118. PANTOPRAZOLE [Concomitant]
     Active Substance: PANTOPRAZOLE
     Indication: ABDOMINAL DISCOMFORT
     Dosage: 40 MG, UNK
     Route: 042
     Dates: start: 20171124, end: 20171124
  119. INSULIN REGULAR [Concomitant]
     Active Substance: INSULIN NOS
     Dosage: 6 U, UNK
     Route: 058
     Dates: start: 20171203, end: 20171207
  120. SENNOSIDE [Concomitant]
     Active Substance: SENNOSIDES
     Indication: ABDOMINAL DISCOMFORT
     Dosage: 1 DF, UNK
     Route: 048
     Dates: start: 20180110, end: 20180111
  121. SENNOSIDE [Concomitant]
     Active Substance: SENNOSIDES
     Dosage: 2 DF, UNK
     Route: 048
     Dates: start: 20180204, end: 20180204
  122. SODIUM BICARBONATE. [Concomitant]
     Active Substance: SODIUM BICARBONATE
     Dosage: 40 ML, UNK
     Route: 042
     Dates: start: 20171224, end: 20171224
  123. TRANEXAMIC ACID. [Concomitant]
     Active Substance: TRANEXAMIC ACID
     Indication: WOUND
     Dosage: 250 MG, UNK
     Route: 042
     Dates: start: 20171212, end: 20171212
  124. VENACALO-B6 [Concomitant]
     Active Substance: CALCIUM BROMIDE\DIPHENHYDRAMINE HYDROCHLORIDE\PYRIDOXINE HYDROCHLORIDE
     Dosage: 1 DF, UNK
     Route: 042
     Dates: start: 20180213, end: 20180213
  125. TASIGNA [Suspect]
     Active Substance: NILOTINIB
     Dosage: 300 MG, UNK
     Route: 048
     Dates: start: 20160629, end: 20160824
  126. COLCHICINE. [Concomitant]
     Active Substance: COLCHICINE
     Indication: GOUT
     Dosage: 0.5 MG, UNK
     Route: 048
     Dates: start: 20171116, end: 20171116
  127. SMECTITE [Concomitant]
     Active Substance: MONTMORILLONITE
     Dosage: 3 G, UNK
     Route: 048
     Dates: start: 20180213, end: 20180219
  128. DULCOLAX NOS [Concomitant]
     Active Substance: BISACODYL OR DOCUSATE SODIUM
     Dosage: 2 DF, UNK
     Route: 048
     Dates: start: 20171222, end: 20171222
  129. HUMAN MONOSULIN [Concomitant]
     Active Substance: INSULIN HUMAN
     Dosage: 10 U, UNK
     Route: 058
     Dates: start: 20180126, end: 20180126
  130. INSULIN ASPART [Concomitant]
     Active Substance: INSULIN ASPART
     Dosage: 1 U, UNK
     Route: 058
     Dates: start: 20180106, end: 20180106
  131. NOVOMIX [Concomitant]
     Active Substance: INSULIN ASPART
     Dosage: 18 U, UNK
     Route: 058
     Dates: start: 20180114, end: 20180114
  132. NOVOMIX [Concomitant]
     Active Substance: INSULIN ASPART
     Dosage: 18 U, UNK
     Route: 058
     Dates: start: 20180118, end: 20180119

REACTIONS (3)
  - Insomnia [Not Recovered/Not Resolved]
  - Depressed level of consciousness [Not Recovered/Not Resolved]
  - Delirium [Not Recovered/Not Resolved]

NARRATIVE: CASE EVENT DATE: 20171116
